FAERS Safety Report 9447968 (Version 1)
Quarter: 2013Q3

REPORT INFORMATION
  Report Type: Report from Study
  Country: NL (occurrence: NL)
  Receive Date: 20130808
  Receipt Date: 20130808
  Transmission Date: 20140515
  Serious: Yes (Hospitalization)
  Sender: FDA-Public Use
  Company Number: PHHY2013NL084965

PATIENT
  Sex: Female

DRUGS (4)
  1. ZOMETA [Suspect]
     Indication: RENAL CELL CARCINOMA
     Dosage: 4 MG/100 ML, EVERY 4 WEEKS
     Route: 042
  2. ZOMETA [Suspect]
     Dosage: 4 MG/100 ML, EVERY 4 WEEKS
     Route: 042
     Dates: start: 20130422
  3. ZOMETA [Suspect]
     Dosage: 4 MG/100 ML, EVERY 4 WEEKS
     Route: 042
     Dates: start: 20130618
  4. ZOMETA [Suspect]
     Dosage: 4 MG/100 ML, EVERY 4 WEEKS
     Route: 042
     Dates: start: 20130716

REACTIONS (1)
  - Cerebral haemorrhage [Not Recovered/Not Resolved]
